FAERS Safety Report 8221464-1 (Version None)
Quarter: 2012Q1

REPORT INFORMATION
  Report Type: 
  Country: None (occurrence: None)
  Receive Date: 20120320
  Receipt Date: 20120315
  Transmission Date: 20120608
  Serious: Yes (Death, Life-Threatening, Hospitalization, Other)
  Sender: FDA-Public Use
  Company Number: MX-SANOFI-AVENTIS-2012SA018199

PATIENT
  Age: 71 Year
  Sex: Male

DRUGS (4)
  1. TAXOTERE [Suspect]
     Indication: PROSTATE CANCER
     Route: 042
  2. PREDNISONE [Concomitant]
     Indication: PROSTATE CANCER
     Route: 065
  3. PREDNISONE [Concomitant]
     Route: 065
     Dates: start: 20110721, end: 20110721
  4. TAXOTERE [Suspect]
     Route: 042
     Dates: start: 20110721, end: 20110721

REACTIONS (6)
  - RESPIRATORY DISORDER [None]
  - GASTROINTESTINAL HAEMORRHAGE [None]
  - PNEUMONITIS [None]
  - THROMBOPHLEBITIS [None]
  - DEATH [None]
  - CATHETER SITE PHLEBITIS [None]
